FAERS Safety Report 23144061 (Version 1)
Quarter: 2023Q4

REPORT INFORMATION
  Report Type: Spontaneous
  Country: US (occurrence: US)
  Receive Date: 20231103
  Receipt Date: 20231103
  Transmission Date: 20240109
  Serious: No
  Sender: FDA-Public Use
  Company Number: US-PFIZER INC-PV202300163248

PATIENT
  Age: 81 Year
  Sex: Male

DRUGS (4)
  1. BRAFTOVI [Suspect]
     Active Substance: ENCORAFENIB
     Indication: BRAF gene mutation
     Dosage: 300 MG, DAILY, (TAKE 4 CAPSULES FOR 360 DAYS)
     Route: 048
  2. BRAFTOVI [Suspect]
     Active Substance: ENCORAFENIB
     Indication: Thyroid cancer
  3. MEKTOVI [Suspect]
     Active Substance: BINIMETINIB
     Indication: BRAF gene mutation
     Dosage: 30 MG, 2X/DAY, (TAKE 2 TABLETS DAILY FOR 360 DAYS. TAKE APPROXIMATELY 12 HOURS APART)
     Route: 048
  4. MEKTOVI [Suspect]
     Active Substance: BINIMETINIB
     Indication: Thyroid cancer

REACTIONS (2)
  - Drug intolerance [Unknown]
  - Off label use [Unknown]
